FAERS Safety Report 4413262-1 (Version None)
Quarter: 2004Q3

REPORT INFORMATION
  Report Type: 
  Country: None (occurrence: None)
  Receive Date: 20040728
  Receipt Date: 20040715
  Transmission Date: 20050211
  Serious: Yes (Death)
  Sender: FDA-Public Use
  Company Number: US-JNJFOC-20040704817

PATIENT
  Age: 87 Year
  Sex: Female

DRUGS (24)
  1. REMICADE [Suspect]
     Indication: RHEUMATOID ARTHRITIS
     Dosage: 3 MG/KG, 1 IN 1 TOTAL, INTRAVENOUS
     Route: 042
     Dates: start: 20001001
  2. REMICADE [Suspect]
     Indication: RHEUMATOID ARTHRITIS
     Dosage: 3 MG/KG, 1 IN 1 TOTAL, INTRAVENOUS
     Route: 042
     Dates: start: 20040602
  3. LOPRESSOR [Concomitant]
  4. PREDNISONE [Concomitant]
  5. TYLENOL [Concomitant]
  6. ZOLOFT (SERTRALINE HYDROCHLRIDE) [Concomitant]
  7. TOPROL-XL [Concomitant]
  8. THOPHYLLINE SR (THEOPHYLLINE) [Concomitant]
  9. PEPCID [Concomitant]
  10. IMDUR [Concomitant]
  11. FOSAMAX [Concomitant]
  12. FOLIC ACID [Concomitant]
  13. FLONASE [Concomitant]
  14. ACLOVATE (ALCLOMETASONE DIPROPIONATE) [Concomitant]
  15. ACETYLSALICYLIC ACID SRT [Concomitant]
  16. METHOTREXATE [Concomitant]
  17. CELEBREX [Concomitant]
  18. OSCAL (CALCIUM CARBONATE) [Concomitant]
  19. MVI (MULTIVITAMINS) [Concomitant]
  20. ELOAVIL (AMITRIPTYLINE HYDROCHLORIDE) [Concomitant]
  21. DIOVAN [Concomitant]
  22. IMODIUM [Concomitant]
  23. ATIVAN [Concomitant]
  24. TEARS (TEARS NATURALE) [Concomitant]

REACTIONS (1)
  - RESPIRATORY FAILURE [None]
